FAERS Safety Report 7439833-6 (Version None)
Quarter: 2011Q2

REPORT INFORMATION
  Report Type: 
  Country: None (occurrence: None)
  Receive Date: 20110427
  Receipt Date: 20110415
  Transmission Date: 20111010
  Serious: No
  Sender: FDA-Public Use
  Company Number: US-ROXANE LABORATORIES, INC.-2011-RO-00522RO

PATIENT
  Sex: Female

DRUGS (3)
  1. MOXATAG [Suspect]
     Indication: SINUSITIS
     Dosage: 775 MG
     Dates: start: 20110216, end: 20110222
  2. PREDNISONE [Suspect]
     Indication: SINUSITIS
     Route: 048
     Dates: start: 20110222
  3. PREDNISONE [Suspect]
     Dates: start: 20110221, end: 20110221

REACTIONS (2)
  - ABDOMINAL PAIN [None]
  - NAUSEA [None]
